FAERS Safety Report 21792631 (Version 1)
Quarter: 2022Q4

REPORT INFORMATION
  Report Type: Spontaneous
  Country: US (occurrence: US)
  Receive Date: 20221229
  Receipt Date: 20221229
  Transmission Date: 20230112
  Serious: No
  Sender: FDA-Public Use
  Company Number: US-GSK-US2022GSK193843

PATIENT
  Sex: Female
  Weight: 150 kg

DRUGS (1)
  1. WELLBUTRIN XL [Suspect]
     Active Substance: BUPROPION HYDROCHLORIDE
     Indication: Depression
     Dosage: 450 MG, QD (1 IN 1 D)
     Route: 048
     Dates: start: 202206

REACTIONS (1)
  - Drug ineffective [Unknown]
